FAERS Safety Report 14740182 (Version 1)
Quarter: 2018Q2

REPORT INFORMATION
  Report Type: Spontaneous
  Country: US (occurrence: US)
  Receive Date: 20180410
  Receipt Date: 20180410
  Transmission Date: 20180711
  Serious: No
  Sender: FDA-Public Use
  Company Number: US-ALLERGAN-1816485US

PATIENT
  Age: 10 Year
  Sex: Male

DRUGS (1)
  1. TRIPTORELIN PAMOATE - BP [Suspect]
     Active Substance: TRIPTORELIN PAMOATE
     Indication: PRODUCT USED FOR UNKNOWN INDICATION
     Dosage: 22.5 MG, UNK
     Route: 030
     Dates: start: 20180108, end: 20180108

REACTIONS (2)
  - Hot flush [Recovered/Resolved]
  - Puberty [Recovered/Resolved]

NARRATIVE: CASE EVENT DATE: 2018
